FAERS Safety Report 9774869 (Version 1)
Quarter: 2013Q4

REPORT INFORMATION
  Report Type: Spontaneous
  Country: US (occurrence: US)
  Receive Date: 20131220
  Receipt Date: 20131220
  Transmission Date: 20140711
  Serious: No
  Sender: FDA-Public Use
  Company Number: US-GLAXOSMITHKLINE-A1005238A

PATIENT
  Age: 90 Year
  Sex: Male

DRUGS (12)
  1. AVODART [Suspect]
     Indication: BENIGN PROSTATIC HYPERPLASIA
     Dosage: .5MG PER DAY
     Route: 048
     Dates: start: 20120814
  2. PLAVIX [Concomitant]
  3. SYNTHROID [Concomitant]
  4. NASONEX [Concomitant]
  5. PRO-AIR [Concomitant]
  6. TYLENOL [Concomitant]
  7. QVAR [Concomitant]
  8. VITAMIN B12 [Concomitant]
  9. MULTIVITAMIN [Concomitant]
  10. VITAMIN D [Concomitant]
  11. HYDROCHLOROTHIAZIDE [Concomitant]
  12. MUCINEX [Concomitant]

REACTIONS (4)
  - Foreign body [Recovered/Resolved]
  - Throat irritation [Recovered/Resolved]
  - Dysphonia [Recovering/Resolving]
  - Respiratory tract congestion [Recovering/Resolving]
